FAERS Safety Report 17850802 (Version 1)
Quarter: 2020Q2

REPORT INFORMATION
  Report Type: Spontaneous
  Country: US (occurrence: US)
  Receive Date: 20200602
  Receipt Date: 20200602
  Transmission Date: 20200714
  Serious: No
  Sender: FDA-Public Use
  Company Number: None

PATIENT
  Age: 58 Year
  Sex: Female
  Weight: 100.7 kg

DRUGS (2)
  1. HUMIRA [Suspect]
     Active Substance: ADALIMUMAB
     Indication: RHEUMATOID ARTHRITIS
     Dosage: EVERY 2 WEEKS
     Route: 058
     Dates: start: 20180618, end: 20200520
  2. HUMIRA [Concomitant]
     Active Substance: ADALIMUMAB
     Dates: start: 20180618, end: 20200520

REACTIONS (4)
  - Injection site haemorrhage [None]
  - Rash pruritic [None]
  - Increased tendency to bruise [None]
  - Dry skin [None]

NARRATIVE: CASE EVENT DATE: 20190410
